FAERS Safety Report 9708661 (Version 2)
Quarter: 2013Q4

REPORT INFORMATION
  Report Type: Other
  Country: FR (occurrence: FR)
  Receive Date: 20131125
  Receipt Date: 20131125
  Transmission Date: 20140711
  Serious: Yes (Hospitalization)
  Sender: FDA-Public Use
  Company Number: FR-NAPPMUNDI-GBR-2012-0012021

PATIENT
  Age: 35 Year
  Sex: Female

DRUGS (3)
  1. OXYCODONE HYDROCHLORIDE [Suspect]
     Indication: PAIN
     Dosage: 80 MG, DAILY
     Route: 065
  2. OXYCODONE HYDROCHLORIDE [Suspect]
     Dosage: 40 MG, DAILY
     Route: 048
  3. OXYCODONE HYDROCHLORIDE [Suspect]
     Dosage: 20 MG, DAILY
     Route: 048

REACTIONS (4)
  - Drug dependence [Recovered/Resolved]
  - Personality change [Unknown]
  - Aggression [Unknown]
  - Amnesia [Unknown]
